FAERS Safety Report 5580152-0 (Version None)
Quarter: 2007Q4

REPORT INFORMATION
  Report Type: 
  Country: None (occurrence: None)
  Receive Date: 20071228
  Receipt Date: 20071218
  Transmission Date: 20080405
  Serious: Yes (Other)
  Sender: FDA-Public Use
  Company Number: 2007S1013541

PATIENT
  Age: 63 Year
  Sex: Female
  Weight: 65 kg

DRUGS (6)
  1. ONDANSETRON HCL [Suspect]
     Indication: ANTIBIOTIC PROPHYLAXIS
     Dosage: 4 MG;INTRAVENOUS
     Route: 042
     Dates: start: 20071122, end: 20071122
  2. CEFUROXIME [Suspect]
     Dosage: 750 MG;INTRAVENOUS
     Route: 042
     Dates: start: 20071121, end: 20071122
  3. DICLOFENAC SODIUM [Concomitant]
  4. SIMVASTATIN [Concomitant]
  5. TRAMADOL HCL [Concomitant]
  6. OXYCODONE HCL [Suspect]

REACTIONS (2)
  - RASH [None]
  - SWELLING FACE [None]
